FAERS Safety Report 6041485-7 (Version None)
Quarter: 2009Q1

REPORT INFORMATION
  Report Type: 
  Country: None (occurrence: None)
  Receive Date: 20090116
  Receipt Date: 20081020
  Transmission Date: 20090719
  Serious: No
  Sender: FDA-Public Use
  Company Number: US-BRISTOL-MYERS SQUIBB COMPANY-14376602

PATIENT
  Age: 55 Year
  Sex: Male

DRUGS (1)
  1. ABILIFY [Suspect]
     Indication: BIPOLAR I DISORDER
     Dosage: STARTED WITH 10 MG AND REDUCED TO 2 MG QD ON 07OCT08.
     Dates: start: 20080929

REACTIONS (2)
  - MICTURITION URGENCY [None]
  - POLYURIA [None]
